FAERS Safety Report 13064991 (Version 2)
Quarter: 2019Q4

REPORT INFORMATION
  Report Type: Report from Study
  Country: CO (occurrence: CO)
  Receive Date: 20161227
  Receipt Date: 20191224
  Transmission Date: 20200122
  Serious: Yes (Other)
  Sender: FDA-Public Use
  Company Number: CO-JNJFOC-20161220654

PATIENT
  Age: 27 Year
  Sex: Male
  Weight: 63 kg

DRUGS (1)
  1. SIMPONI [Suspect]
     Active Substance: GOLIMUMAB
     Indication: ANKYLOSING SPONDYLITIS
     Route: 058
     Dates: start: 20131112

REACTIONS (3)
  - Malaise [Recovering/Resolving]
  - Pain in extremity [Recovering/Resolving]
  - Cutaneous larva migrans [Recovering/Resolving]

NARRATIVE: CASE EVENT DATE: 20161217
